FAERS Safety Report 20112392 (Version 1)
Quarter: 2021Q4

REPORT INFORMATION
  Report Type: Spontaneous
  Country: CN (occurrence: CN)
  Receive Date: 20211125
  Receipt Date: 20211125
  Transmission Date: 20220303
  Serious: Yes (Other)
  Sender: FDA-Public Use
  Company Number: CN-MLMSERVICE-20211111-3218125-1

PATIENT
  Age: 5 Year
  Sex: Male

DRUGS (3)
  1. TACROLIMUS [Suspect]
     Active Substance: TACROLIMUS
     Indication: Nephrotic syndrome
     Dates: start: 201601, end: 2016
  2. CYCLOSPORINE [Suspect]
     Active Substance: CYCLOSPORINE
     Indication: Nephrotic syndrome
     Dates: start: 201601, end: 2016
  3. CYCLOPHOSPHAMIDE [Concomitant]
     Active Substance: CYCLOPHOSPHAMIDE
     Indication: Nephrotic syndrome
     Dates: start: 201601, end: 2016

REACTIONS (9)
  - End stage renal disease [Recovered/Resolved]
  - Respiratory tract infection [Unknown]
  - Erysipelas [Unknown]
  - Pleurisy [Unknown]
  - Acute kidney injury [Recovered/Resolved]
  - Peritonitis [Unknown]
  - Cellulitis [Unknown]
  - Nephropathy toxic [Recovered/Resolved]
  - Infection [Unknown]

NARRATIVE: CASE EVENT DATE: 20160101
